FAERS Safety Report 14782624 (Version 4)
Quarter: 2018Q2

REPORT INFORMATION
  Report Type: Report from Study
  Country: None (occurrence: CA)
  Receive Date: 20180420
  Receipt Date: 20180607
  Transmission Date: 20180711
  Serious: Yes (Other)
  Sender: FDA-Public Use
  Company Number: CA-ABBVIE-18K-028-2327570-00

PATIENT
  Age: 66 Year
  Sex: Male

DRUGS (2)
  1. HUMIRA [Suspect]
     Active Substance: ADALIMUMAB
     Indication: CROHN^S DISEASE
     Route: 058
     Dates: start: 20180323
  2. CORTELAN [Suspect]
     Active Substance: CORTISONE ACETATE
     Indication: PRODUCT USED FOR UNKNOWN INDICATION
     Route: 065

REACTIONS (11)
  - Dizziness [Not Recovered/Not Resolved]
  - Migraine [Recovered/Resolved]
  - Cortisol decreased [Unknown]
  - Anxiety [Not Recovered/Not Resolved]
  - Gastrointestinal obstruction [Not Recovered/Not Resolved]
  - Dysstasia [Unknown]
  - Fatigue [Not Recovered/Not Resolved]
  - Balance disorder [Unknown]
  - Asthenia [Recovered/Resolved]
  - Hernia pain [Unknown]
  - Crohn^s disease [Not Recovered/Not Resolved]

NARRATIVE: CASE EVENT DATE: 2018
